FAERS Safety Report 19489188 (Version 2)
Quarter: 2021Q3

REPORT INFORMATION
  Report Type: Spontaneous
  Country: US (occurrence: US)
  Receive Date: 20210703
  Receipt Date: 20210923
  Transmission Date: 20211014
  Serious: No
  Sender: FDA-Public Use
  Company Number: NVSC2021US144143

PATIENT
  Age: 78 Year
  Sex: Female

DRUGS (1)
  1. VOLTAREN [Suspect]
     Active Substance: DICLOFENAC SODIUM
     Indication: ARTHRITIS
     Dosage: UNK
     Route: 065
     Dates: start: 20210621

REACTIONS (7)
  - Sneezing [Unknown]
  - Chest discomfort [Unknown]
  - Product complaint [Unknown]
  - Contraindicated product administered [Unknown]
  - Product administration error [Unknown]
  - Paraesthesia [Unknown]
  - Stress [Unknown]

NARRATIVE: CASE EVENT DATE: 20210621
